FAERS Safety Report 8411175-1 (Version None)
Quarter: 2012Q2

REPORT INFORMATION
  Report Type: 
  Country: None (occurrence: None)
  Receive Date: 20120605
  Receipt Date: 20120523
  Transmission Date: 20120825
  Serious: Yes (Hospitalization)
  Sender: FDA-Public Use
  Company Number: IT-UCBSA-058296

PATIENT
  Age: 75 Year
  Sex: Male

DRUGS (11)
  1. CARDURA [Concomitant]
     Dosage: 4 MG
     Route: 048
  2. ATORVASTATIN CALCIUM [Concomitant]
  3. LUBIVON [Concomitant]
  4. LEVOTHYROXINE SODIUM [Concomitant]
  5. HUMALOG [Concomitant]
  6. CARVEDILOL [Suspect]
     Indication: HYPERTENSION
     Dosage: DAILY DOSE:25MG
     Route: 048
     Dates: start: 20120518, end: 20120518
  7. VALSARTAN  AND HYDROCHLOROTHIAZIDE [Concomitant]
     Dosage: 1 DF DAILY
     Route: 048
  8. IVABRADINE [Suspect]
     Indication: ANGINA PECTORIS
     Dosage: DAILY DOSE: 5MG
     Route: 048
     Dates: start: 20120518, end: 20120520
  9. PANTOPRAZOLE [Concomitant]
  10. MONOKET [Suspect]
     Indication: ANGINA PECTORIS
     Dosage: DAILY DOSE: 40MG
     Route: 048
     Dates: start: 20120518, end: 20120520
  11. CATAPRES-TTS-1 [Concomitant]

REACTIONS (2)
  - SINUS BRADYCARDIA [None]
  - SYNCOPE [None]
